FAERS Safety Report 5236753-2 (Version None)
Quarter: 2007Q1

REPORT INFORMATION
  Report Type: 
  Country: None (occurrence: None)
  Receive Date: 20070213
  Receipt Date: 20070131
  Transmission Date: 20070707
  Serious: Yes (Other)
  Sender: FDA-Public Use
  Company Number: PHBS2006JP20040

PATIENT
  Age: 65 Year
  Sex: Male

DRUGS (2)
  1. RESCULA [Suspect]
     Indication: GLAUCOMA
     Dosage: 4 DRP, UNK
     Dates: start: 20061031, end: 20061219
  2. SANCOBA [Concomitant]
     Dosage: 8 DRP, UNK
     Dates: end: 20061219

REACTIONS (6)
  - CORNEAL EROSION [None]
  - CORNEAL OEDEMA [None]
  - FOREIGN BODY SENSATION IN EYES [None]
  - KERATITIS [None]
  - LACRIMATION INCREASED [None]
  - VISUAL ACUITY REDUCED [None]
